FAERS Safety Report 9046910 (Version 2)
Quarter: 2013Q1

REPORT INFORMATION
  Report Type: Spontaneous
  Country: US (occurrence: US)
  Receive Date: 20130204
  Receipt Date: 20130213
  Transmission Date: 20140127
  Serious: No
  Sender: FDA-Public Use
  Company Number: US-009507513-1302USA000683

PATIENT
  Sex: 0
  Weight: 87.75 kg

DRUGS (1)
  1. IMPLANON [Suspect]
     Dosage: UNK
     Dates: start: 20130201

REACTIONS (2)
  - Device difficult to use [Unknown]
  - No adverse event [Unknown]
